FAERS Safety Report 8283210 (Version 3)
Quarter: 2013Q4

REPORT INFORMATION
  Report Type: Spontaneous
  Country: US (occurrence: US)
  Receive Date: 20111209
  Receipt Date: 20131107
  Transmission Date: 20140711
  Serious: Yes (Hospitalization)
  Sender: FDA-Public Use
  Company Number: US-ASTRAZENECA-2011SE72787

PATIENT
  Age: 74 Year
  Sex: Female

DRUGS (1)
  1. NEXIUM [Suspect]
     Indication: HIATUS HERNIA
     Route: 048

REACTIONS (5)
  - Diverticulitis [Unknown]
  - Urinary tract infection [Unknown]
  - Anger [Unknown]
  - Off label use [Unknown]
  - Drug dose omission [Unknown]
